FAERS Safety Report 21094760 (Version 2)
Quarter: 2023Q1

REPORT INFORMATION
  Report Type: Spontaneous
  Country: FR (occurrence: FR)
  Receive Date: 20220718
  Receipt Date: 20230217
  Transmission Date: 20230418
  Serious: Yes (Life-Threatening, Other)
  Sender: FDA-Public Use
  Company Number: None

PATIENT
  Age: 63 Year
  Sex: Male
  Weight: 68 kg

DRUGS (16)
  1. VALIUM [Interacting]
     Active Substance: DIAZEPAM
     Indication: Schizophrenia
     Route: 050
     Dates: start: 20220223
  2. ZOPICLONE [Interacting]
     Active Substance: ZOPICLONE
     Indication: Insomnia
     Route: 050
     Dates: start: 20211224, end: 20220314
  3. LOXAPINE SUCCINATE [Interacting]
     Active Substance: LOXAPINE SUCCINATE
     Indication: Schizophrenia
     Route: 050
     Dates: start: 20211230, end: 20220224
  4. LOXAPINE SUCCINATE [Interacting]
     Active Substance: LOXAPINE SUCCINATE
     Route: 050
     Dates: start: 20220307, end: 20220310
  5. LOXAPINE SUCCINATE [Interacting]
     Active Substance: LOXAPINE SUCCINATE
     Route: 050
     Dates: start: 20220310, end: 20220314
  6. LOXAPINE SUCCINATE [Interacting]
     Active Substance: LOXAPINE SUCCINATE
     Route: 050
     Dates: start: 20220224, end: 20220307
  7. SCOPOLAMINE [Interacting]
     Active Substance: SCOPOLAMINE
     Indication: Salivary hypersecretion
     Route: 050
     Dates: start: 20220313, end: 20220314
  8. SCOPOLAMINE [Interacting]
     Active Substance: SCOPOLAMINE
     Route: 050
     Dates: start: 20220316, end: 20220321
  9. SCOPOLAMINE [Interacting]
     Active Substance: SCOPOLAMINE
     Route: 050
     Dates: start: 20220304, end: 20220311
  10. VALPROATE SODIUM [Suspect]
     Active Substance: VALPROATE SODIUM
     Indication: Schizophrenia
     Route: 050
     Dates: start: 20211224, end: 20220314
  11. CLOZAPINE [Interacting]
     Active Substance: CLOZAPINE
     Indication: Schizophrenia
     Route: 050
     Dates: start: 20211230, end: 20220314
  12. MIANSERIN HYDROCHLORIDE [Interacting]
     Active Substance: MIANSERIN HYDROCHLORIDE
     Indication: Depression
     Route: 050
     Dates: start: 20211224, end: 20220314
  13. TROPATEPINE HYDROCHLORIDE [Suspect]
     Active Substance: TROPATEPINE HYDROCHLORIDE
     Indication: Extrapyramidal disorder
     Route: 050
     Dates: start: 20211224, end: 20220314
  14. SENNA LEAF [Concomitant]
     Active Substance: SENNA LEAF
     Indication: Constipation
     Route: 050
     Dates: start: 20220306, end: 20220313
  15. SENNA LEAF [Concomitant]
     Active Substance: SENNA LEAF
     Route: 050
     Dates: start: 20220318, end: 20220321
  16. POLYETHYLENE GLYCOLS [Concomitant]
     Active Substance: POLYETHYLENE GLYCOLS
     Indication: Product used for unknown indication
     Route: 050
     Dates: start: 20211224

REACTIONS (3)
  - Drug interaction [Recovered/Resolved]
  - Intestinal obstruction [Recovered/Resolved]
  - Incorrect dose administered [Unknown]

NARRATIVE: CASE EVENT DATE: 20220314
